FAERS Safety Report 9773723 (Version 1)
Quarter: 2013Q4

REPORT INFORMATION
  Report Type: Spontaneous
  Country: DE (occurrence: None)
  Receive Date: 20131218
  Receipt Date: 20131218
  Transmission Date: 20140711
  Serious: Yes (Hospitalization)
  Sender: FDA-Public Use
  Company Number: 2069297

PATIENT
  Age: 62 Year
  Sex: Male

DRUGS (4)
  1. OXALIPLATIN [Suspect]
     Indication: RECTAL CANCER METASTATIC
     Dosage: 85 MG/M 2 MILLIGRAM(S) /SQ. METER (UNKNOWN)
  2. SODIUM FOLINATE [Suspect]
     Indication: RECTAL CANCER METASTATIC
     Dosage: 500 MG/M 2 MILLIGRAM9S) /SQ. METER (UNKNOWN), INTRAVENOUS DRIP
     Route: 041
  3. FLUOROURACIL [Suspect]
     Indication: RECTAL CANCER METASTATIC
     Dosage: 2000 MG/M 2 MILLIGRAM(S) /SQ. METER,
  4. PHENPROCOUMON [Concomitant]

REACTIONS (6)
  - Pleural effusion [None]
  - Respiratory failure [None]
  - Circulatory collapse [None]
  - Metastases to liver [None]
  - Malignant neoplasm progression [None]
  - Pulmonary granuloma [None]
